FAERS Safety Report 15517947 (Version 1)
Quarter: 2018Q4

REPORT INFORMATION
  Report Type: Spontaneous
  Country: CN (occurrence: CN)
  Receive Date: 20181017
  Receipt Date: 20181017
  Transmission Date: 20190205
  Serious: Yes (Other)
  Sender: FDA-Public Use
  Company Number: CN-PFIZER INC-2018411387

PATIENT
  Age: 58 Year
  Sex: Male
  Weight: 45 kg

DRUGS (1)
  1. LIPITOR [Suspect]
     Active Substance: ATORVASTATIN CALCIUM
     Indication: CONGESTIVE CARDIOMYOPATHY
     Dosage: 20 MG, 1X/DAY
     Route: 048
     Dates: start: 20180731, end: 20180801

REACTIONS (3)
  - Hepatic function abnormal [Recovering/Resolving]
  - Renal impairment [Unknown]
  - Product use in unapproved indication [Recovered/Resolved]

NARRATIVE: CASE EVENT DATE: 20180731
